FAERS Safety Report 15486731 (Version 1)
Quarter: 2018Q4

REPORT INFORMATION
  Report Type: Spontaneous
  Country: GB (occurrence: GB)
  Receive Date: 20181011
  Receipt Date: 20181011
  Transmission Date: 20190205
  Serious: Yes (Death)
  Sender: FDA-Public Use
  Company Number: GB-ROCHE-2197054

PATIENT
  Age: 45 Year
  Sex: Female

DRUGS (3)
  1. AMITRIPTYLINE [Interacting]
     Active Substance: AMITRIPTYLINE
     Indication: PRODUCT USED FOR UNKNOWN INDICATION
     Route: 065
  2. DIAZEPAM. [Suspect]
     Active Substance: DIAZEPAM
     Indication: ANALGESIC THERAPY
     Route: 065
  3. OXYNORM [Interacting]
     Active Substance: OXYCODONE HYDROCHLORIDE
     Indication: ANALGESIC THERAPY
     Route: 065

REACTIONS (3)
  - Drug interaction [Fatal]
  - Accidental death [Fatal]
  - Overdose [Fatal]
